FAERS Safety Report 19469074 (Version 1)
Quarter: 2021Q2

REPORT INFORMATION
  Report Type: Report from Study
  Country: IN (occurrence: IN)
  Receive Date: 20210628
  Receipt Date: 20210628
  Transmission Date: 20210717
  Serious: Yes (Hospitalization)
  Sender: FDA-Public Use
  Company Number: NVSC2021IN138531

PATIENT
  Age: 45 Year
  Sex: Male

DRUGS (1)
  1. SPEXIB [Suspect]
     Active Substance: CERITINIB
     Indication: METASTATIC RENAL CELL CARCINOMA
     Dosage: 450 MG, QD
     Route: 065
     Dates: start: 20191228

REACTIONS (5)
  - Haemoptysis [Recovered/Resolved]
  - Nodule [Not Recovered/Not Resolved]
  - Necrosis [Not Recovered/Not Resolved]
  - Dyspnoea [Recovered/Resolved]
  - Product use in unapproved indication [Unknown]

NARRATIVE: CASE EVENT DATE: 20210603
